FAERS Safety Report 18208457 (Version 4)
Quarter: 2021Q2

REPORT INFORMATION
  Report Type: Spontaneous
  Country: US (occurrence: US)
  Receive Date: 20200828
  Receipt Date: 20210507
  Transmission Date: 20210717
  Serious: Yes (Hospitalization, Other)
  Sender: FDA-Public Use
  Company Number: US-PFIZER INC-2020333844

PATIENT
  Age: 69 Year
  Sex: Female

DRUGS (1)
  1. XELJANZ XR [Suspect]
     Active Substance: TOFACITINIB CITRATE
     Indication: RHEUMATOID ARTHRITIS
     Dosage: 11 MG, 1X/DAY
     Route: 048
     Dates: start: 202001

REACTIONS (12)
  - Abdominal distension [Unknown]
  - Malaise [Not Recovered/Not Resolved]
  - COVID-19 [Unknown]
  - Herpes zoster [Unknown]
  - Abdominal discomfort [Unknown]
  - Rheumatoid arthritis [Unknown]
  - Pneumonia [Unknown]
  - Intentional product misuse [Unknown]
  - Fear of disease [Unknown]
  - Peripheral swelling [Unknown]
  - Feeling abnormal [Unknown]
  - Fatigue [Unknown]

NARRATIVE: CASE EVENT DATE: 2020
